FAERS Safety Report 5412998-3 (Version None)
Quarter: 2007Q3

REPORT INFORMATION
  Report Type: 
  Country: None (occurrence: None)
  Receive Date: 20070813
  Receipt Date: 20070804
  Transmission Date: 20080115
  Serious: Yes (Hospitalization)
  Sender: FDA-Public Use
  Company Number: IN-PFIZER INC-2007052501

PATIENT
  Age: 65 Year
  Sex: Female
  Weight: 60 kg

DRUGS (3)
  1. FRAGMIN [Suspect]
     Indication: PROPHYLAXIS
     Route: 058
     Dates: start: 20070531, end: 20070611
  2. ACETYLSALICYLIC ACID SRT [Concomitant]
     Dosage: DAILY DOSE:75MG
     Route: 048
     Dates: start: 20070531, end: 20070611
  3. CLOPIDOGREL [Concomitant]
     Dosage: DAILY DOSE:75MG
     Route: 048
     Dates: start: 20070531, end: 20070611

REACTIONS (2)
  - COMPLEX PARTIAL SEIZURES [None]
  - HAEMORRHAGIC CEREBRAL INFARCTION [None]
